FAERS Safety Report 10504020 (Version 3)
Quarter: 2015Q3

REPORT INFORMATION
  Report Type: Spontaneous
  Country: US (occurrence: US)
  Receive Date: 20141008
  Receipt Date: 20150923
  Transmission Date: 20151125
  Serious: No
  Sender: FDA-Public Use
  Company Number: US-BEH-2013037030

PATIENT
  Sex: Female
  Weight: 69 kg

DRUGS (29)
  1. PRIVIGEN [Suspect]
     Active Substance: HUMAN IMMUNOGLOBULIN G
     Indication: IMMUNODEFICIENCY
     Route: 042
  2. HEPARIN [Concomitant]
     Active Substance: HEPARIN SODIUM
  3. FOLIC ACID. [Concomitant]
     Active Substance: FOLIC ACID
  4. FLONASE [Concomitant]
     Active Substance: FLUTICASONE PROPIONATE
  5. METOPROLOL TARTRATE. [Concomitant]
     Active Substance: METOPROLOL TARTRATE
  6. FUROSEMIDE. [Concomitant]
     Active Substance: FUROSEMIDE
  7. ALPRAZOLAM. [Concomitant]
     Active Substance: ALPRAZOLAM
  8. FIORICET [Concomitant]
     Active Substance: ACETAMINOPHEN\BUTALBITAL\CAFFEINE
  9. NYSTATIN. [Concomitant]
     Active Substance: NYSTATIN
  10. SODIUM CHLORIDE. [Concomitant]
     Active Substance: SODIUM CHLORIDE
  11. TOVIAZ [Concomitant]
     Active Substance: FESOTERODINE FUMARATE
  12. PARAFON FORTE [Concomitant]
     Active Substance: CHLORZOXAZONE
  13. AMOXICILLIN. [Concomitant]
     Active Substance: AMOXICILLIN
  14. MOBIC [Concomitant]
     Active Substance: MELOXICAM
  15. CIPROFLOXACIN. [Concomitant]
     Active Substance: CIPROFLOXACIN
  16. PRIVIGEN [Suspect]
     Active Substance: HUMAN IMMUNOGLOBULIN G
     Route: 042
  17. LIDOCAINE. [Concomitant]
     Active Substance: LIDOCAINE
  18. NEXIUM [Concomitant]
     Active Substance: ESOMEPRAZOLE MAGNESIUM
  19. DIPHENHYDRAMINE. [Concomitant]
     Active Substance: DIPHENHYDRAMINE
  20. LAMISIL [Concomitant]
     Active Substance: TERBINAFINE HYDROCHLORIDE
  21. TYLENOL [Concomitant]
     Active Substance: ACETAMINOPHEN
  22. AUGMENTIN [Concomitant]
     Active Substance: AMOXICILLIN\CLAVULANATE POTASSIUM
  23. EPIPEN [Concomitant]
     Active Substance: EPINEPHRINE
  24. METHOTREXATE [Concomitant]
     Active Substance: METHOTREXATE
  25. PRIVIGEN [Suspect]
     Active Substance: HUMAN IMMUNOGLOBULIN G
     Dosage: MAX. 100 ML/HR
     Route: 042
  26. CELEBREX [Concomitant]
     Active Substance: CELECOXIB
  27. AMLODIPINE BESYLATE. [Concomitant]
     Active Substance: AMLODIPINE BESYLATE
  28. GABAPENTIN. [Concomitant]
     Active Substance: GABAPENTIN
  29. REMICADE [Concomitant]
     Active Substance: INFLIXIMAB

REACTIONS (8)
  - Feeling abnormal [Unknown]
  - Pyrexia [Unknown]
  - White blood cell count abnormal [Unknown]
  - Herpes zoster [Unknown]
  - Eye infection [Unknown]
  - Chills [Unknown]
  - Sinusitis [Unknown]
  - Upper respiratory tract infection [Unknown]
